FAERS Safety Report 9609321 (Version 2)
Quarter: 2013Q4

REPORT INFORMATION
  Report Type: Spontaneous
  Country: JP (occurrence: JP)
  Receive Date: 20131009
  Receipt Date: 20131009
  Transmission Date: 20140711
  Serious: Yes (Death, Hospitalization)
  Sender: FDA-Public Use
  Company Number: JP-ELI_LILLY_AND_COMPANY-JP201308008915

PATIENT
  Age: 68 Year
  Sex: Male
  Weight: 46.8 kg

DRUGS (13)
  1. ALIMTA [Suspect]
     Indication: PLEURAL MESOTHELIOMA MALIGNANT
     Dosage: 500 MG/M2, UNK
     Route: 042
     Dates: start: 20120911, end: 20130218
  2. CISPLATIN [Suspect]
     Indication: PLEURAL MESOTHELIOMA MALIGNANT
     Dosage: 75 MG/M2, UNK
     Dates: start: 20120911, end: 20130108
  3. FRESMIN S [Concomitant]
     Dosage: 1 MG, UNK
     Route: 058
     Dates: start: 20120822
  4. PANVITAN [Concomitant]
     Dosage: 1 G, UNK
     Route: 048
     Dates: start: 20120822, end: 20120822
  5. CALONAL [Concomitant]
     Indication: CANCER PAIN
     Dosage: 1200 MG, UNK
     Route: 048
     Dates: start: 20120911, end: 20130410
  6. PARIET [Concomitant]
     Indication: GASTROOESOPHAGEAL REFLUX DISEASE
     Dosage: 10 MG, UNK
     Route: 048
     Dates: start: 20120918, end: 20130401
  7. SITAGLIPTIN [Concomitant]
     Indication: DIABETES MELLITUS
     Dosage: 25 MG, UNK
     Route: 048
     Dates: start: 20120921, end: 20130404
  8. CELECOX [Concomitant]
     Indication: CANCER PAIN
     Dosage: 400 MG, UNK
     Route: 048
     Dates: start: 20120918, end: 20130414
  9. LIPITOR [Concomitant]
     Indication: LIPID METABOLISM DISORDER
     Dosage: 10 MG, UNK
     Route: 048
     Dates: start: 20120926, end: 20130414
  10. PLETAAL [Concomitant]
     Indication: PERIPHERAL ARTERIAL OCCLUSIVE DISEASE
     Dosage: 200 MG, UNK
     Route: 048
     Dates: start: 20120911, end: 20130324
  11. OXYCONTIN [Concomitant]
     Indication: CANCER PAIN
     Dosage: 10 MG, UNK
     Route: 048
     Dates: start: 20130218, end: 20130312
  12. MAGMITT [Concomitant]
     Indication: CONSTIPATION
     Dosage: 990 MG, UNK
     Route: 048
     Dates: start: 20130220, end: 20130404
  13. BACTAR [Concomitant]
     Indication: PROPHYLAXIS
     Dosage: 1 DF, UNK
     Route: 048
     Dates: start: 20130321, end: 20130620

REACTIONS (2)
  - Interstitial lung disease [Fatal]
  - Renal disorder [Recovering/Resolving]
